FAERS Safety Report 6632416-7 (Version None)
Quarter: 2010Q1

REPORT INFORMATION
  Report Type: 
  Country: None (occurrence: None)
  Receive Date: 20100312
  Receipt Date: 20090903
  Transmission Date: 20100710
  Serious: No
  Sender: FDA-Public Use
  Company Number: 2008BI001362

PATIENT
  Age: 50 Year
  Sex: Female

DRUGS (2)
  1. AVONEX [Suspect]
     Indication: MULTIPLE SCLEROSIS
     Route: 030
     Dates: start: 19980101, end: 20030301
  2. AVONEX [Suspect]
     Route: 030
     Dates: start: 20031211

REACTIONS (4)
  - MULTIPLE SCLEROSIS RELAPSE [None]
  - PORPHYRIA NON-ACUTE [None]
  - RASH [None]
  - URINARY INCONTINENCE [None]
